FAERS Safety Report 16236029 (Version 1)
Quarter: 2019Q2

REPORT INFORMATION
  Report Type: Report from Study
  Country: None (occurrence: US)
  Receive Date: 20190425
  Receipt Date: 20190425
  Transmission Date: 20190711
  Serious: Yes (Other)
  Sender: FDA-Public Use
  Company Number: US-ABBVIE-19S-163-2752248-00

PATIENT
  Age: 60 Year
  Sex: Female

DRUGS (1)
  1. CREON [Suspect]
     Active Substance: PANCRELIPASE AMYLASE\PANCRELIPASE LIPASE\PANCRELIPASE PROTEASE
     Indication: PRODUCT USED FOR UNKNOWN INDICATION
     Route: 048

REACTIONS (12)
  - Pancreatitis [Unknown]
  - Polypectomy [Unknown]
  - Elbow operation [Unknown]
  - Pancreatitis chronic [Unknown]
  - Type 2 diabetes mellitus [Unknown]
  - Cataract [Unknown]
  - Spinal operation [Unknown]
  - Colonoscopy [Unknown]
  - Hysterectomy [Unknown]
  - Polyp [Unknown]
  - Spinal fusion surgery [Unknown]
  - Gallbladder disorder [Unknown]

NARRATIVE: CASE EVENT DATE: 2000
